FAERS Safety Report 8177212-7 (Version None)
Quarter: 2012Q1

REPORT INFORMATION
  Report Type: 
  Country: None (occurrence: None)
  Receive Date: 20120301
  Receipt Date: 20120224
  Transmission Date: 20120608
  Serious: Yes (Hospitalization, Other)
  Sender: FDA-Public Use
  Company Number: CA-JNJFOC-20120207132

PATIENT
  Sex: Male
  Weight: 94.5 kg

DRUGS (5)
  1. REMICADE [Suspect]
     Indication: CROHN'S DISEASE
     Route: 042
     Dates: start: 20080212
  2. REMICADE [Suspect]
     Dosage: 24TH INFUSION
     Route: 042
     Dates: start: 20111209
  3. EFFEXOR [Concomitant]
     Route: 065
  4. ATIVAN [Concomitant]
     Route: 065
  5. CRESTOR [Concomitant]
     Indication: BLOOD CHOLESTEROL INCREASED
     Route: 065

REACTIONS (2)
  - PANCREATITIS [None]
  - BLOOD GLUCOSE INCREASED [None]
